FAERS Safety Report 17628986 (Version 2)
Quarter: 2020Q2

REPORT INFORMATION
  Report Type: Spontaneous
  Country: US (occurrence: US)
  Receive Date: 20200406
  Receipt Date: 20200414
  Transmission Date: 20200713
  Serious: No
  Sender: FDA-Public Use
  Company Number: US-ASTRAZENECA-2020SE43582

PATIENT
  Age: 27100 Day
  Sex: Female

DRUGS (1)
  1. BYDUREON BCISE [Suspect]
     Active Substance: EXENATIDE
     Indication: TYPE 2 DIABETES MELLITUS
     Route: 058
     Dates: start: 20200319

REACTIONS (4)
  - Product impurity [Unknown]
  - Device malfunction [Unknown]
  - Wrong technique in product usage process [Not Recovered/Not Resolved]
  - Injection site pain [Unknown]

NARRATIVE: CASE EVENT DATE: 20200319
